FAERS Safety Report 19208778 (Version 1)
Quarter: 2021Q2

REPORT INFORMATION
  Report Type: Spontaneous
  Country: US (occurrence: US)
  Receive Date: 20210504
  Receipt Date: 20210504
  Transmission Date: 20210717
  Serious: Yes (Hospitalization, Other)
  Sender: FDA-Public Use
  Company Number: US-MACLEODS PHARMACEUTICALS US LTD-MAC2021031004

PATIENT

DRUGS (1)
  1. OLANZAPINE 10MG TABLET [Suspect]
     Active Substance: OLANZAPINE
     Indication: PSYCHOTIC DISORDER
     Dosage: 31 DOSAGE FORM, SINGLE (TOTAL)
     Route: 065

REACTIONS (20)
  - Gastrointestinal sounds abnormal [Recovered/Resolved]
  - Toxicity to various agents [Recovered/Resolved]
  - Urinary retention [Recovered/Resolved]
  - Myoclonus [Recovered/Resolved]
  - Mydriasis [Recovered/Resolved]
  - Agitation [Recovered/Resolved]
  - Delirium [Recovered/Resolved]
  - Dry mouth [Recovering/Resolving]
  - Sinus tachycardia [Recovered/Resolved]
  - Urinary incontinence [Recovered/Resolved]
  - Overdose [Recovered/Resolved]
  - Flushing [Recovered/Resolved]
  - Mental status changes [Recovered/Resolved]
  - Anticholinergic syndrome [Recovered/Resolved]
  - Leukocytosis [Unknown]
  - Vision blurred [Recovered/Resolved]
  - Hypertension [Recovered/Resolved]
  - Dry skin [Recovered/Resolved]
  - Somnolence [Recovered/Resolved]
  - Tremor [Recovered/Resolved]
